FAERS Safety Report 8940350 (Version 1)
Quarter: 2012Q4

REPORT INFORMATION
  Report Type: Report from Study
  Country: AR (occurrence: AR)
  Receive Date: 20121130
  Receipt Date: 20121130
  Transmission Date: 20130627
  Serious: Yes (Other)
  Sender: FDA-Public Use
  Company Number: AR-ABBOTT-12P-007-1014060-00

PATIENT
  Age: 76 Year
  Sex: Female

DRUGS (4)
  1. HUMIRA [Suspect]
     Indication: RHEUMATOID ARTHRITIS
     Route: 058
     Dates: start: 20120513
  2. UNKNOWN SLEEPING PILLS [Concomitant]
     Indication: SLEEP DISORDER
  3. UNKNOWN ANTI-INFLAMMATORY DRUG [Concomitant]
     Indication: PRODUCT USED FOR UNKNOWN INDICATION
  4. CORTICOIDS [Concomitant]
     Indication: PRODUCT USED FOR UNKNOWN INDICATION

REACTIONS (4)
  - Hypotension [Recovering/Resolving]
  - Oedema peripheral [Recovering/Resolving]
  - Mobility decreased [Unknown]
  - Rheumatoid arthritis [Unknown]
